FAERS Safety Report 9727159 (Version 1)
Quarter: 2013Q4

REPORT INFORMATION
  Report Type: Spontaneous
  Country: US (occurrence: US)
  Receive Date: 20131203
  Receipt Date: 20131203
  Transmission Date: 20140711
  Serious: No
  Sender: FDA-Public Use
  Company Number: US-BRISTOL-MYERS SQUIBB COMPANY-19168046

PATIENT
  Sex: Male

DRUGS (4)
  1. KOMBIGLYZE XR [Suspect]
  2. DILTIAZEM HCL [Concomitant]
  3. LISINOPRIL [Concomitant]
  4. SIMVASTATIN [Concomitant]

REACTIONS (2)
  - Drug dose omission [Unknown]
  - Blood glucose increased [Unknown]
